FAERS Safety Report 22613945 (Version 1)
Quarter: 2023Q2

REPORT INFORMATION
  Report Type: Spontaneous
  Country: US (occurrence: US)
  Receive Date: 20230619
  Receipt Date: 20230619
  Transmission Date: 20230721
  Serious: Yes (Other)
  Sender: FDA-Public Use
  Company Number: US-BEH-2023159943

PATIENT
  Sex: Female
  Weight: 3.178 kg

DRUGS (4)
  1. HUMAN RHO(D) IMMUNE GLOBULIN [Suspect]
     Active Substance: HUMAN RHO(D) IMMUNE GLOBULIN
     Indication: Product used for unknown indication
     Route: 064
  2. SERTRALINE [Suspect]
     Active Substance: SERTRALINE HYDROCHLORIDE
     Route: 064
  3. VITAMIN K [Concomitant]
     Active Substance: PHYTONADIONE
     Route: 065
  4. HEPATITIS B VIRUS VACCINE [Concomitant]
     Active Substance: HEPATITIS B VIRUS VACCINE
     Route: 065

REACTIONS (25)
  - Gestational alloimmune liver disease [Unknown]
  - Maternal exposure during pregnancy [Unknown]
  - Lethargy [Unknown]
  - Hypoglycaemia neonatal [Unknown]
  - Jaundice [Unknown]
  - Bilirubin conjugated increased [Unknown]
  - Prothrombin time prolonged [Unknown]
  - Blood fibrinogen decreased [Unknown]
  - Hepatic failure [Unknown]
  - Coagulopathy [Unknown]
  - Alpha 1 foetoprotein increased [Unknown]
  - Hepatic cirrhosis [Unknown]
  - Serum ferritin increased [Unknown]
  - Neonatal respiratory depression [Unknown]
  - Maternal exposure during pregnancy [Unknown]
  - Hypothermia neonatal [Unknown]
  - Maternal exposure during pregnancy [Unknown]
  - Hypotonia [Unknown]
  - Maternal exposure during pregnancy [Unknown]
  - Hyporesponsive to stimuli [Unknown]
  - Maternal exposure during pregnancy [Unknown]
  - Cardiac murmur [Unknown]
  - Maternal exposure during pregnancy [Unknown]
  - Hyponatraemia [Unknown]
  - Maternal exposure during pregnancy [Unknown]
